FAERS Safety Report 8589727-8 (Version None)
Quarter: 2012Q3

REPORT INFORMATION
  Report Type: 
  Country: None (occurrence: None)
  Receive Date: 20120813
  Receipt Date: 20120809
  Transmission Date: 20120928
  Serious: Yes (Hospitalization)
  Sender: FDA-Public Use
  Company Number: IT-ROCHE-1094385

PATIENT
  Sex: Male

DRUGS (9)
  1. BENDAMUSTINE HYDROCHLORIDE [Suspect]
     Indication: CHRONIC LYMPHOCYTIC LEUKAEMIA
     Route: 042
     Dates: start: 20110802, end: 20110803
  2. NAVOBAN [Concomitant]
     Route: 042
     Dates: start: 20110802, end: 20110803
  3. ALLOPURINOL [Concomitant]
     Route: 048
     Dates: start: 20110704, end: 20110830
  4. ACETAMINOPHEN [Concomitant]
     Route: 048
     Dates: start: 20110801, end: 20110801
  5. FLEBOCORTID [Concomitant]
     Route: 048
     Dates: start: 20110801, end: 20110801
  6. GRANULOKINE [Concomitant]
     Route: 058
     Dates: start: 20110809, end: 20110814
  7. MABTHERA [Suspect]
     Indication: CHRONIC LYMPHOCYTIC LEUKAEMIA
     Route: 042
     Dates: start: 20110801, end: 20110801
  8. LEVOFLOXACIN [Concomitant]
     Route: 048
     Dates: start: 20110809, end: 20110820
  9. TRIMETON [Concomitant]
     Route: 048
     Dates: start: 20110801, end: 20110801

REACTIONS (1)
  - APPLICATION SITE PAPULES [None]
